FAERS Safety Report 16173234 (Version 1)
Quarter: 2019Q2

REPORT INFORMATION
  Report Type: Spontaneous
  Country: GB (occurrence: GB)
  Receive Date: 20190409
  Receipt Date: 20190409
  Transmission Date: 20190711
  Serious: Yes (Other)
  Sender: FDA-Public Use
  Company Number: GB-009507513-1904GBR003205

PATIENT
  Sex: Male

DRUGS (1)
  1. KEYTRUDA [Suspect]
     Active Substance: PEMBROLIZUMAB
     Indication: NON-SMALL CELL LUNG CANCER
     Dosage: 3 CYCLES

REACTIONS (3)
  - Malignant neoplasm progression [Unknown]
  - Skin reaction [Not Recovered/Not Resolved]
  - Pruritus [Not Recovered/Not Resolved]
